FAERS Safety Report 4393096-7 (Version None)
Quarter: 2004Q3

REPORT INFORMATION
  Report Type: 
  Country: None (occurrence: None)
  Receive Date: 20040708
  Receipt Date: 20040218
  Transmission Date: 20050211
  Serious: Yes (Hospitalization, Other)
  Sender: FDA-Public Use
  Company Number: US-BRISTOL-MYERS SQUIBB COMPANY-12511127

PATIENT
  Age: 77 Year
  Sex: Female
  Weight: 44 kg

DRUGS (6)
  1. AVALIDE [Suspect]
     Indication: HYPERTENSION
     Dosage: THERAPY INITIATED 1 1/2 WEEKS AGO
     Route: 048
     Dates: start: 20040201
  2. ATENOLOL [Concomitant]
  3. EVISTA [Concomitant]
  4. DIAZEPAM [Concomitant]
  5. CALCIUM [Concomitant]
  6. MULTI-VITAMIN [Concomitant]

REACTIONS (11)
  - ANAEMIA [None]
  - ARTERIOSCLEROSIS [None]
  - BLOOD CHLORIDE DECREASED [None]
  - BLOOD POTASSIUM DECREASED [None]
  - BLOOD PRESSURE INADEQUATELY CONTROLLED [None]
  - BLOOD SODIUM DECREASED [None]
  - CHEST PAIN [None]
  - DIZZINESS [None]
  - FATIGUE [None]
  - FEELING COLD [None]
  - NAUSEA [None]
